FAERS Safety Report 14609929 (Version 3)
Quarter: 2018Q3

REPORT INFORMATION
  Report Type: Report from Study
  Country: None (occurrence: US)
  Receive Date: 20180307
  Receipt Date: 20180731
  Transmission Date: 20181010
  Serious: Yes (Hospitalization, Other)
  Sender: FDA-Public Use
  Company Number: US-ABBVIE-17K-163-2164726-00

PATIENT
  Age: 58 Year
  Sex: Male
  Weight: 80.81 kg

DRUGS (20)
  1. IMODIUM [Concomitant]
     Active Substance: LOPERAMIDE HYDROCHLORIDE
     Indication: DIARRHOEA
  2. CALCIUM WITH VITAMIN D3 [Concomitant]
     Active Substance: CALCIUM CARBONATE\CHOLECALCIFEROL
     Indication: VITAMIN SUPPLEMENTATION
  3. LAMOTRIGINE. [Concomitant]
     Active Substance: LAMOTRIGINE
     Indication: BIPOLAR II DISORDER
  4. MILK THISTLE [Concomitant]
     Active Substance: DIETARY SUPPLEMENT\HERBALS\MILK THISTLE
     Indication: LIVER DISORDER
  5. HUMIRA [Suspect]
     Active Substance: ADALIMUMAB
     Indication: CROHN^S DISEASE
     Route: 058
     Dates: start: 2016, end: 20171217
  6. OXYCODONE [Concomitant]
     Active Substance: OXYCODONE
     Indication: PAIN
  7. CLONAZEPAM. [Concomitant]
     Active Substance: CLONAZEPAM
     Indication: BIPOLAR II DISORDER
  8. CALCIUM WITH MAGNESIUM, ZINC, AND VITAMIN D3 [Concomitant]
     Indication: MINERAL SUPPLEMENTATION
  9. AMITRIPTYLINE [Concomitant]
     Active Substance: AMITRIPTYLINE
     Indication: PAIN
  10. FISH OIL [Concomitant]
     Active Substance: FISH OIL
     Indication: SUPPLEMENTATION THERAPY
  11. BUPROPION. [Concomitant]
     Active Substance: BUPROPION
     Indication: BIPOLAR II DISORDER
  12. CALCIUM WITH MAGNESIUM, ZINC, AND VITAMIN D3 [Concomitant]
     Indication: MINERAL SUPPLEMENTATION
  13. FENOFIBRATE. [Concomitant]
     Active Substance: FENOFIBRATE
     Indication: BLOOD CHOLESTEROL INCREASED
  14. HUMIRA [Suspect]
     Active Substance: ADALIMUMAB
     Route: 058
     Dates: start: 20180225
  15. VITAMIN B12 [Concomitant]
     Active Substance: CYANOCOBALAMIN
     Indication: NERVOUS SYSTEM DISORDER
  16. MELATONIN [Concomitant]
     Active Substance: MELATONIN
     Indication: SLEEP DISORDER THERAPY
  17. TYLENOL [Concomitant]
     Active Substance: ACETAMINOPHEN
     Indication: PAIN
  18. CALCIUM WITH MAGNESIUM, ZINC, AND VITAMIN D3 [Concomitant]
     Indication: MINERAL SUPPLEMENTATION
  19. CALCIUM WITH MAGNESIUM, ZINC, AND VITAMIN D3 [Concomitant]
     Indication: VITAMIN SUPPLEMENTATION
  20. CALCIUM WITH VITAMIN D3 [Concomitant]
     Active Substance: CALCIUM CARBONATE\CHOLECALCIFEROL
     Indication: MINERAL SUPPLEMENTATION

REACTIONS (8)
  - Injection site pain [Recovering/Resolving]
  - Exostosis [Recovered/Resolved]
  - Intervertebral disc protrusion [Recovering/Resolving]
  - Large intestinal obstruction [Unknown]
  - Fall [Recovering/Resolving]
  - Intestinal obstruction [Recovered/Resolved]
  - Syncope [Recovering/Resolving]
  - Spinal fusion surgery [Recovering/Resolving]

NARRATIVE: CASE EVENT DATE: 2017
